FAERS Safety Report 9985596 (Version 2)
Quarter: 2014Q3

REPORT INFORMATION
  Report Type: Spontaneous
  Country: US (occurrence: US)
  Receive Date: 20140307
  Receipt Date: 20140818
  Transmission Date: 20150326
  Serious: Yes (Hospitalization)
  Sender: FDA-Public Use
  Company Number: US-BAYER-2014-035487

PATIENT
  Age: 34 Year
  Sex: Female
  Weight: 77.98 kg

DRUGS (3)
  1. YAZ [Suspect]
     Active Substance: DROSPIRENONE\ETHINYL ESTRADIOL
     Indication: CONTRACEPTION
     Dosage: UNK
     Dates: start: 2001, end: 2004
  2. YASMIN [Suspect]
     Active Substance: DROSPIRENONE\ETHINYL ESTRADIOL
     Indication: CONTRACEPTION
     Dosage: UNK
     Dates: start: 2001, end: 2004
  3. PAXIL [Concomitant]
     Active Substance: PAROXETINE HYDROCHLORIDE

REACTIONS (10)
  - Abdominal pain [None]
  - Pain [Recovered/Resolved]
  - Injury [Recovered/Resolved]
  - Anxiety [None]
  - Pain [None]
  - Pulmonary embolism [Recovered/Resolved]
  - Emotional distress [None]
  - Deep vein thrombosis [None]
  - General physical health deterioration [Recovered/Resolved]
  - Pulmonary infarction [None]

NARRATIVE: CASE EVENT DATE: 200403
